FAERS Safety Report 17203302 (Version 6)
Quarter: 2020Q1

REPORT INFORMATION
  Report Type: Report from Study
  Country: ES (occurrence: ES)
  Receive Date: 20191226
  Receipt Date: 20200309
  Transmission Date: 20200409
  Serious: Yes (Hospitalization, Other)
  Sender: FDA-Public Use
  Company Number: ES-SHIRE-ES201924619

PATIENT

DRUGS (25)
  1. TEDUGLUTIDE [Suspect]
     Active Substance: TEDUGLUTIDE
     Indication: GASTROSCHISIS
     Dosage: 0.04 MILLILITER, 1X/DAY:QD
     Route: 058
     Dates: start: 20190723
  2. TEDUGLUTIDE [Suspect]
     Active Substance: TEDUGLUTIDE
     Dosage: 0.04 MILLILITER, 1X/DAY:QD
     Route: 058
     Dates: start: 20190923
  3. GLUTAFERRO [ASCORBIC ACID;DOCUSATE SODIUM;FERROUS GLUTAMATE] [Concomitant]
     Indication: PRODUCT USED FOR UNKNOWN INDICATION
  4. METALGIAL [Concomitant]
     Active Substance: METAMIZOLE SODIUM
     Indication: PAIN
  5. SALVACOLINA [Concomitant]
     Indication: PRODUCT USED FOR UNKNOWN INDICATION
  6. TEDUGLUTIDE [Suspect]
     Active Substance: TEDUGLUTIDE
     Dosage: 0.04 MILLILITER, 1X/DAY:QD
     Route: 058
     Dates: start: 20190723
  7. TEDUGLUTIDE [Suspect]
     Active Substance: TEDUGLUTIDE
     Dosage: 0.04 MILLILITER, 1X/DAY:QD
     Route: 058
     Dates: start: 20191226
  8. CHOLESTYRAMINE RESIN [Concomitant]
     Active Substance: CHOLESTYRAMINE
     Indication: PRODUCT USED FOR UNKNOWN INDICATION
  9. TEDUGLUTIDE [Suspect]
     Active Substance: TEDUGLUTIDE
     Dosage: 0.04 MILLILITER, 1X/DAY:QD
     Route: 065
     Dates: start: 20200223
  10. OMEPRAZOLE. [Concomitant]
     Active Substance: OMEPRAZOLE
     Indication: PRODUCT USED FOR UNKNOWN INDICATION
  11. URSOCHOL [Concomitant]
     Active Substance: URSODIOL
     Indication: PRODUCT USED FOR UNKNOWN INDICATION
  12. TEDUGLUTIDE [Suspect]
     Active Substance: TEDUGLUTIDE
     Dosage: 0.04 MILLILITER, 1X/DAY:QD
     Route: 058
     Dates: start: 20190923
  13. TEDUGLUTIDE [Suspect]
     Active Substance: TEDUGLUTIDE
     Dosage: 0.04 MILLILITER, 1X/DAY:QD
     Route: 065
     Dates: start: 20191203
  14. LOPERAMIDE [Concomitant]
     Active Substance: LOPERAMIDE
     Indication: PRODUCT USED FOR UNKNOWN INDICATION
  15. METRONIDAZOLE. [Concomitant]
     Active Substance: METRONIDAZOLE
     Indication: PRODUCT USED FOR UNKNOWN INDICATION
  16. VITAMIN D NOS [Concomitant]
     Active Substance: VITAMIN D NOS
     Indication: PRODUCT USED FOR UNKNOWN INDICATION
  17. SEPTRIN [Concomitant]
     Active Substance: SULFAMETHOXAZOLE\TRIMETHOPRIM
     Indication: PRODUCT USED FOR UNKNOWN INDICATION
  18. TEDUGLUTIDE [Suspect]
     Active Substance: TEDUGLUTIDE
     Indication: MOSAICISM
     Dosage: 0.04 MILLILITER, 1X/DAY:QD
     Route: 058
     Dates: start: 20190723
  19. CHOLESTYRAMINE. [Concomitant]
     Active Substance: CHOLESTYRAMINE
     Indication: PRODUCT USED FOR UNKNOWN INDICATION
  20. FLAGYL [Concomitant]
     Active Substance: METRONIDAZOLE\METRONIDAZOLE HYDROCHLORIDE
     Indication: PRODUCT USED FOR UNKNOWN INDICATION
  21. TEDUGLUTIDE [Suspect]
     Active Substance: TEDUGLUTIDE
     Dosage: 0.04 MILLILITER, 1X/DAY:QD
     Route: 058
     Dates: start: 20191229
  22. TEDUGLUTIDE [Suspect]
     Active Substance: TEDUGLUTIDE
     Dosage: 0.04 MILLILITER, 1X/DAY:QD
     Route: 065
     Dates: start: 20191203
  23. RESINCOLESTIRAMINA [Concomitant]
     Indication: PRODUCT USED FOR UNKNOWN INDICATION
  24. TEDUGLUTIDE [Suspect]
     Active Substance: TEDUGLUTIDE
     Dosage: 0.04 MILLILITER, 1X/DAY:QD
     Route: 058
     Dates: start: 20190923
  25. CLOTRIMAZOLE. [Concomitant]
     Active Substance: CLOTRIMAZOLE
     Indication: PRODUCT USED FOR UNKNOWN INDICATION

REACTIONS (41)
  - Abdominal discomfort [Not Recovered/Not Resolved]
  - Abnormal faeces [Recovered/Resolved]
  - Chromaturia [Recovered/Resolved]
  - Constipation [Not Recovered/Not Resolved]
  - Hypersomnia [Unknown]
  - Eye swelling [Not Recovered/Not Resolved]
  - Agitation [Recovered/Resolved]
  - Intentional product use issue [Unknown]
  - Wrong technique in product usage process [Not Recovered/Not Resolved]
  - Catheter site granuloma [Recovered/Resolved]
  - Middle insomnia [Not Recovered/Not Resolved]
  - Pyrexia [Recovered/Resolved]
  - Rhinorrhoea [Not Recovered/Not Resolved]
  - Injection site erythema [Recovered/Resolved]
  - Abdominal pain [Not Recovered/Not Resolved]
  - Catheter site infection [Not Recovered/Not Resolved]
  - Pulmonary oedema [Recovered/Resolved]
  - Tremor [Not Recovered/Not Resolved]
  - Muscle spasms [Not Recovered/Not Resolved]
  - Inappropriate schedule of product administration [Unknown]
  - Thrombosis [Not Recovered/Not Resolved]
  - Crying [Not Recovered/Not Resolved]
  - Frequent bowel movements [Not Recovered/Not Resolved]
  - Injection site haemorrhage [Recovered/Resolved]
  - Decreased appetite [Not Recovered/Not Resolved]
  - Catheter site swelling [Recovered/Resolved]
  - Ear infection [Recovered/Resolved]
  - Complication associated with device [Recovered/Resolved]
  - Energy increased [Not Recovered/Not Resolved]
  - Sepsis [Recovered/Resolved]
  - Oropharyngeal pain [Recovered/Resolved]
  - Increased appetite [Recovered/Resolved]
  - Retching [Not Recovered/Not Resolved]
  - Faeces discoloured [Recovered/Resolved]
  - Diarrhoea [Not Recovered/Not Resolved]
  - Unevaluable event [Not Recovered/Not Resolved]
  - Mucous stools [Not Recovered/Not Resolved]
  - Abdominal distension [Recovered/Resolved]
  - Fatigue [Recovered/Resolved]
  - Depression [Not Recovered/Not Resolved]
  - Insomnia [Not Recovered/Not Resolved]

NARRATIVE: CASE EVENT DATE: 20190723
